FAERS Safety Report 4948274-2 (Version None)
Quarter: 2006Q1

REPORT INFORMATION
  Report Type: 
  Country: None (occurrence: None)
  Receive Date: 20060127
  Receipt Date: 20050223
  Transmission Date: 20060701
  Serious: Yes (Death)
  Sender: FDA-Public Use
  Company Number: 05-02-0270

PATIENT
  Age: 55 Year
  Sex: Female

DRUGS (1)
  1. CLOZAPINE [Suspect]
     Indication: DEMENTIA
     Dosage: 75-175MG QD, ORAL
     Route: 048
     Dates: start: 20050201, end: 20050205

REACTIONS (2)
  - DEMENTIA [None]
  - FAILURE TO THRIVE [None]
